FAERS Safety Report 25288588 (Version 3)
Quarter: 2025Q2

REPORT INFORMATION
  Report Type: Spontaneous
  Country: US (occurrence: US)
  Receive Date: 20250509
  Receipt Date: 20250618
  Transmission Date: 20250716
  Serious: Yes (Other)
  Sender: PFIZER
  Company Number: US-PFIZER INC-202500096312

PATIENT
  Age: 85 Year
  Sex: Female
  Weight: 80.285 kg

DRUGS (18)
  1. VYNDAMAX [Suspect]
     Active Substance: TAFAMIDIS
     Indication: Amyloidosis
     Dosage: 61 MG, 1X/DAY
     Route: 048
  2. ACETAMINOPHEN [Concomitant]
     Active Substance: ACETAMINOPHEN
     Route: 048
     Dates: start: 20221227
  3. MAGNESIUM ALUMINUM SILICATE [Concomitant]
     Active Substance: MAGNESIUM ALUMINUM SILICATE
     Dosage: TAKE 1 (ONE) Q6HRS (EVERY 6 HOURS),(BULK) 100% POWDER
     Dates: start: 20221227
  4. VITAMIN C [Concomitant]
     Active Substance: ASCORBIC ACID
     Dosage: TAKE 1 (ONE) CAPSULE BY ORAL ROUTE QD (DAILY)
     Route: 048
     Dates: start: 20221227
  5. BRIMONIDINE [Concomitant]
     Active Substance: BRIMONIDINE TARTRATE
     Dosage: TAKE 1 (ONE) BID (TWO TIMES PER DAY)
     Dates: start: 20221227
  6. CALCIUM\CHOLECALCIFEROL [Concomitant]
     Active Substance: CALCIUM\CHOLECALCIFEROL
     Dosage: DOSE: 500MG-1000 UNIT-40 MCG/TAKE 1 (ONE) BY ORAL ROUTE QD (DAILY)
     Route: 048
     Dates: start: 20221227
  7. VITAMIN K [Concomitant]
     Active Substance: PHYTONADIONE
     Dosage: TAKE 1 (ONE) BY ORAL ROUTE QD (DAILY)
     Dates: start: 20221227
  8. DILTIAZEM [Concomitant]
     Active Substance: DILTIAZEM
     Dosage: TAKE 1 (ONE) CAPSULE BY ORAL ROUTE QAM (EVERY MORNING)
     Route: 048
     Dates: start: 20221227
  9. DOXAZOSIN [Concomitant]
     Active Substance: DOXAZOSIN MESYLATE
     Dosage: TAKE 1 (ONE) TABLET BY ORAL ROUTE QD (DAILY)
     Route: 048
     Dates: start: 20221227
  10. LORAZEPAM [Concomitant]
     Active Substance: LORAZEPAM
     Dosage: TAKE 1 (ONE) TABLET BY ORAL ROUTE BID (TWO TIMES PER DAY)
     Route: 048
     Dates: start: 20221227
  11. NITROGLYCERIN [Concomitant]
     Active Substance: NITROGLYCERIN
     Indication: Chest pain
     Route: 060
     Dates: start: 20221227
  12. PROMETHAZINE DM [Concomitant]
     Active Substance: DEXTROMETHORPHAN HYDROBROMIDE\PROMETHAZINE HYDROCHLORIDE
     Route: 048
     Dates: start: 20221227
  13. ROSUVASTATIN [Concomitant]
     Active Substance: ROSUVASTATIN
     Dosage: TAKE 1 (ONE) TABLET BY ORAL ROUTE QHRS (AT BEDTIME)
     Route: 048
     Dates: start: 20221227
  14. SACCHAROMYCES CEREVISIAE [Concomitant]
     Active Substance: SACCHAROMYCES CEREVISIAE
     Dosage: TAKE 1 (ONE) CAPSULE BY ORAL ROUTE BID (TWO TIMES PER DAY)
     Route: 048
     Dates: start: 20221227
  15. LOSARTAN [Concomitant]
     Active Substance: LOSARTAN
     Dates: start: 20240920
  16. MINOXIDIL [Concomitant]
     Active Substance: MINOXIDIL
     Dosage: TAKE 4 (FOUR) TABLET BY ORAL ROUTE BID (TWO TIMES PER DAY)
     Route: 048
     Dates: start: 20230809
  17. ELIQUIS [Concomitant]
     Active Substance: APIXABAN
     Dosage: TAKE 1 (ONE) TABLET BY ORAL ROUTE BID (TWO TIMES PER DAY)
     Route: 048
     Dates: start: 20230419
  18. DILTIAZEM [Concomitant]
     Active Substance: DILTIAZEM
     Dosage: TAKE 1 (ONE) TABLET BY ORAL ROUTE QD (DAILY) AT HS,EXTENDED RELEASE 24 HR
     Route: 048
     Dates: start: 20230405

REACTIONS (1)
  - Blood pressure increased [Recovered/Resolved]

NARRATIVE: CASE EVENT DATE: 20250501
